FAERS Safety Report 4804759-0 (Version None)
Quarter: 2005Q4

REPORT INFORMATION
  Report Type: 
  Country: None (occurrence: None)
  Receive Date: 20051020
  Receipt Date: 20050927
  Transmission Date: 20060501
  Serious: Yes (Disabling, Other)
  Sender: FDA-Public Use
  Company Number: PHNR2005AU01460

PATIENT
  Age: 60 Year
  Sex: Male

DRUGS (3)
  1. ZOMETA [Suspect]
     Indication: MULTIPLE MYELOMA
     Dosage: UNK, UNK
     Dates: start: 20040301, end: 20050401
  2. PREDNISOLONE [Concomitant]
     Dosage: 50 MG, ALTERNATE DAYS
  3. BACTRIM [Concomitant]
     Dosage: 4 TABLETS PER WEEK

REACTIONS (4)
  - BLOOD CREATININE INCREASED [None]
  - BONE SCAN ABNORMAL [None]
  - GINGIVAL PAIN [None]
  - RENAL IMPAIRMENT [None]
